FAERS Safety Report 16572751 (Version 1)
Quarter: 2019Q3

REPORT INFORMATION
  Report Type: Spontaneous
  Country: US (occurrence: US)
  Receive Date: 20190715
  Receipt Date: 20190715
  Transmission Date: 20191004
  Serious: No
  Sender: FDA-Public Use
  Company Number: US-SA-2019SA189145

PATIENT
  Age: 89 Year
  Sex: Female
  Weight: 58.06 kg

DRUGS (2)
  1. ALPRAZOLAM. [Suspect]
     Active Substance: ALPRAZOLAM
     Indication: SLEEP DISORDER
     Dosage: 0.5 DF, TAKEN NIGHTLY AS NEEDED, NOT EVERY NIGHT
     Dates: start: 2017
  2. AMBIEN [Suspect]
     Active Substance: ZOLPIDEM TARTRATE
     Indication: SLEEP DISORDER
     Dosage: UNK UNK, PRN, TAKEN NIGHTLY AS NEEDED, NOT EVERY NIGHT
     Dates: start: 2017

REACTIONS (2)
  - Insomnia [Unknown]
  - Drug ineffective [Unknown]
